FAERS Safety Report 13585235 (Version 2)
Quarter: 2017Q2

REPORT INFORMATION
  Report Type: Report from Study
  Country: US (occurrence: BR)
  Receive Date: 20170526
  Receipt Date: 20170630
  Transmission Date: 20170830
  Serious: Yes (Life-Threatening, Other)
  Sender: FDA-Public Use
  Company Number: US-SUNOVION-2017SUN002216

PATIENT
  Sex: Male
  Weight: 98 kg

DRUGS (1)
  1. INDACATEROL AND GLYCOPYRROLATE [Suspect]
     Active Substance: GLYCOPYRROLATE\INDACATEROL MALEATE
     Indication: EMPHYSEMA
     Dosage: 1 DF (GLYCOPYRRONIUM BROMIDE 50 MCG + INDACATEROL 110 MCG), QD
     Route: 055

REACTIONS (11)
  - Emphysema [Unknown]
  - Exostosis [Recovering/Resolving]
  - Condition aggravated [Unknown]
  - Abasia [Recovering/Resolving]
  - Drug ineffective [Unknown]
  - Apparent death [Unknown]
  - Presyncope [Unknown]
  - Dyspnoea exertional [Unknown]
  - Asphyxia [Unknown]
  - Fatigue [Unknown]
  - Glucose tolerance impaired [Unknown]
